FAERS Safety Report 8979042 (Version 2)
Quarter: 2013Q2

REPORT INFORMATION
  Report Type: Spontaneous
  Country: US (occurrence: US)
  Receive Date: 20121221
  Receipt Date: 20130624
  Transmission Date: 20140414
  Serious: Yes (Other)
  Sender: FDA-Public Use
  Company Number: US-009507513-1212USA008169

PATIENT
  Sex: Female

DRUGS (10)
  1. FOSAMAX [Suspect]
     Indication: OSTEOPOROSIS
     Dosage: 10 MG, UNK
     Route: 048
     Dates: start: 200104, end: 201003
  2. FOSAMAX [Suspect]
     Dosage: 70 MG, UNK
     Route: 048
     Dates: start: 200104, end: 201003
  3. FOSAMAX PLUS D [Suspect]
     Dosage: 70MG/2800UNITS
     Route: 048
  4. ALENDRONATE SODIUM [Suspect]
     Dosage: 70 MG, UNK
  5. LEVOTHROID [Concomitant]
     Indication: HYPOTHYROIDISM
     Dosage: UNK
     Dates: start: 2000
  6. XANAX [Concomitant]
     Indication: ANXIETY
     Dosage: UNK
     Dates: start: 2000
  7. PRILOSEC [Concomitant]
     Dosage: UNK
     Dates: start: 2000
  8. CENTRUM SILVER [Concomitant]
     Dosage: UNK, QD
     Dates: start: 2001
  9. NATROL OMEGA 3-6-9 [Concomitant]
     Dosage: UNK, QD
     Dates: start: 2001
  10. CALCIUM (UNSPECIFIED) (+) VITAMIN D (UNSPECIFIED) [Concomitant]
     Dosage: UNK, QD
     Dates: start: 2001

REACTIONS (10)
  - Femur fracture [Recovered/Resolved]
  - Foot fracture [Unknown]
  - Fibromyalgia [Unknown]
  - Knee operation [Unknown]
  - Rectal haemorrhage [Unknown]
  - Lumbar radiculopathy [Unknown]
  - Patellofemoral pain syndrome [Unknown]
  - Oedema peripheral [Unknown]
  - Abdominal pain [Unknown]
  - Back pain [Not Recovered/Not Resolved]
